FAERS Safety Report 6404304-2 (Version None)
Quarter: 2009Q4

REPORT INFORMATION
  Report Type: 
  Country: None (occurrence: None)
  Receive Date: 20091016
  Receipt Date: 20091006
  Transmission Date: 20100525
  Serious: Yes (Other)
  Sender: FDA-Public Use
  Company Number: B0596491A

PATIENT
  Age: 31 Year
  Sex: Female

DRUGS (6)
  1. PREDNISOLONE [Suspect]
     Indication: VOMITING
     Route: 065
  2. METOCLOPRAMIDE [Suspect]
     Indication: VOMITING
     Route: 065
  3. ONDANSETRON [Suspect]
     Indication: VOMITING
     Dosage: 4MG THREE TIMES PER DAY
  4. RANITIDINE [Suspect]
     Indication: VOMITING
     Dosage: 150MG PER DAY
     Route: 042
  5. CYCLIZINE [Suspect]
     Indication: VOMITING
     Dosage: 150MG PER DAY
     Route: 042
  6. THIAMINE HCL [Suspect]
     Indication: VOMITING
     Dosage: 75MG PER DAY
     Route: 048

REACTIONS (2)
  - DRUG EXPOSURE DURING PREGNANCY [None]
  - DRUG INEFFECTIVE [None]
